FAERS Safety Report 26082058 (Version 1)
Quarter: 2025Q4

REPORT INFORMATION
  Report Type: Spontaneous
  Country: US (occurrence: None)
  Receive Date: 20251121
  Receipt Date: 20251121
  Transmission Date: 20260117
  Serious: Yes (Hospitalization)
  Sender: FDA-CTU
  Company Number: None

PATIENT
  Age: 53 Year
  Sex: Female
  Weight: 80.1 kg

DRUGS (1)
  1. FLUORESCEIN [Suspect]
     Active Substance: FLUORESCEIN
     Indication: Diagnostic procedure
     Dosage: GGIVEN IN OFFICE INTRAVENOUS ?
     Route: 042
     Dates: start: 20251120, end: 20251120

REACTIONS (6)
  - Contrast media reaction [None]
  - Throat tightness [None]
  - Throat irritation [None]
  - Dyspnoea [None]
  - Device delivery system issue [None]
  - Device malfunction [None]

NARRATIVE: CASE EVENT DATE: 20251121
